FAERS Safety Report 11836024 (Version 1)
Quarter: 2015Q4

REPORT INFORMATION
  Report Type: Spontaneous
  Country: US (occurrence: US)
  Receive Date: 20151215
  Receipt Date: 20151215
  Transmission Date: 20160305
  Serious: No
  Sender: FDA-Public Use
  Company Number: US-APOTEX-2015AP013538

PATIENT
  Sex: Male

DRUGS (2)
  1. FENTANYL TRANSDERMAL SYSTEM [Suspect]
     Active Substance: FENTANYL
     Indication: PAIN
     Dosage: 50 ?G, UNK
     Route: 065
  2. FENTANYL TRANSDERMAL SYSTEM [Suspect]
     Active Substance: FENTANYL
     Dosage: 100 ?G, UNK
     Route: 065

REACTIONS (6)
  - Feeling cold [Unknown]
  - Tremor [Unknown]
  - Anxiety [Unknown]
  - Hyperhidrosis [Unknown]
  - Drug effect decreased [Unknown]
  - Product adhesion issue [Unknown]
